FAERS Safety Report 25632756 (Version 1)
Quarter: 2025Q3

REPORT INFORMATION
  Report Type: Spontaneous
  Country: US (occurrence: US)
  Receive Date: 20250801
  Receipt Date: 20250801
  Transmission Date: 20251021
  Serious: No
  Sender: GRIFOLS
  Company Number: US-IGSA-BIG0032788

PATIENT
  Age: 74 Year
  Sex: Female

DRUGS (9)
  1. GAMUNEX-C [Suspect]
     Active Substance: HUMAN IMMUNOGLOBULIN G
     Indication: Immunodeficiency
  2. BETAMETHASONE [Concomitant]
     Active Substance: BETAMETHASONE
  3. TACROLIMUS ACCORD [TACROLIMUS MONOHYDRATE] [Concomitant]
  4. PREVNAR 20 [Concomitant]
     Active Substance: PNEUMOCOCCAL 20-VALENT CONJUGATE VACCINE
  5. TRELEGY ELLIPTA [Concomitant]
     Active Substance: FLUTICASONE FUROATE\UMECLIDINIUM BROMIDE\VILANTEROL TRIFENATATE
  6. ARNUITY ELLIPTA [Concomitant]
     Active Substance: FLUTICASONE FUROATE
  7. COMBIVENT [Concomitant]
     Active Substance: ALBUTEROL SULFATE\IPRATROPIUM BROMIDE
  8. MONTELUKAST SODIUM [Concomitant]
     Active Substance: MONTELUKAST SODIUM
  9. FUROSEMIDE [Concomitant]
     Active Substance: FUROSEMIDE
     Route: 048

REACTIONS (3)
  - Administration site wound [Recovered/Resolved]
  - Infusion site pain [Unknown]
  - Product administration error [Unknown]

NARRATIVE: CASE EVENT DATE: 20241101
